FAERS Safety Report 9308921 (Version 1)
Quarter: 2013Q2

REPORT INFORMATION
  Report Type: Spontaneous
  Country: US (occurrence: US)
  Receive Date: 20130524
  Receipt Date: 20130524
  Transmission Date: 20140414
  Serious: Yes (Hospitalization, Other)
  Sender: FDA-Public Use
  Company Number: US-BAXTER-2013BAX017923

PATIENT
  Age: 24 Year
  Sex: Female

DRUGS (4)
  1. NEXTERONE_AMIODARONE, HYDROCHLORIDE 1.50 MG/ML_SOLUTION FOR INFUSION_B [Suspect]
     Indication: VENTRICULAR FIBRILLATION
     Route: 042
  2. ISOPROTERENOL /00006301/ [Suspect]
     Indication: VENTRICULAR FIBRILLATION
     Route: 042
  3. AMIODARONE [Concomitant]
     Indication: VENTRICULAR FIBRILLATION
     Route: 048
  4. QUINIDINE [Concomitant]
     Indication: VENTRICULAR FIBRILLATION

REACTIONS (5)
  - Exposure during pregnancy [Recovered/Resolved]
  - Drug ineffective [Unknown]
  - Ventricular fibrillation [Recovered/Resolved]
  - Hypoxia [Recovered/Resolved]
  - Premature delivery [Recovered/Resolved]
